FAERS Safety Report 7999055-7 (Version None)
Quarter: 2011Q4

REPORT INFORMATION
  Report Type: 
  Country: None (occurrence: None)
  Receive Date: 20111221
  Receipt Date: 20111213
  Transmission Date: 20120403
  Serious: Yes (Other)
  Sender: FDA-Public Use
  Company Number: PHEH2010US00586

PATIENT
  Sex: Female

DRUGS (16)
  1. TYKERB [Concomitant]
  2. TAXOTERE [Concomitant]
  3. CHEMOTHERAPEUTICS [Concomitant]
  4. AREDIA [Suspect]
     Indication: BREAST CANCER
  5. XELODA [Concomitant]
  6. FOLIC ACID [Concomitant]
  7. REGLAN [Concomitant]
     Dosage: 5 MG,
  8. ZOMETA [Suspect]
     Indication: BREAST CANCER
  9. RADIATION THERAPY [Concomitant]
  10. AMOXICILLIN [Concomitant]
     Dosage: 500 MG, TID
  11. CARBOPLATIN [Concomitant]
  12. AROMASIN [Concomitant]
  13. CLINDAMYCIN [Concomitant]
     Dosage: 150 MG, QID
  14. HERCEPTIN [Concomitant]
  15. MORPHINE [Concomitant]
     Dosage: 4 MG,
  16. TAMOXIFEN [Concomitant]

REACTIONS (44)
  - OSTEOPENIA [None]
  - ERYTHEMA [None]
  - BONE INFARCTION [None]
  - TACHYCARDIA [None]
  - MENTAL STATUS CHANGES [None]
  - ANHEDONIA [None]
  - METASTASES TO LIVER [None]
  - OSTEOPOROSIS [None]
  - SPINAL FRACTURE [None]
  - BACK PAIN [None]
  - OSTEOARTHRITIS [None]
  - TRICUSPID VALVE INCOMPETENCE [None]
  - PYOGENIC GRANULOMA [None]
  - PAIN [None]
  - ANXIETY [None]
  - SINUS DISORDER [None]
  - PNEUMOCEPHALUS [None]
  - PERICARDIAL EFFUSION [None]
  - HYPERKALAEMIA [None]
  - INJURY [None]
  - METASTASES TO LUNG [None]
  - DIZZINESS [None]
  - OEDEMA PERIPHERAL [None]
  - CARDIAC MURMUR [None]
  - SUBDURAL HAEMATOMA [None]
  - METASTASES TO BONE [None]
  - URINARY INCONTINENCE [None]
  - VISUAL IMPAIRMENT [None]
  - OVARIAN CYST [None]
  - BONE LESION [None]
  - SINUSITIS [None]
  - METASTASES TO CENTRAL NERVOUS SYSTEM [None]
  - VASOGENIC CEREBRAL OEDEMA [None]
  - ASTHENIA [None]
  - FALL [None]
  - MIGRAINE [None]
  - SPINAL OSTEOARTHRITIS [None]
  - ABDOMINAL PAIN [None]
  - OSTEONECROSIS OF JAW [None]
  - CENTRAL NERVOUS SYSTEM LESION [None]
  - CHOLELITHIASIS [None]
  - MITRAL VALVE INCOMPETENCE [None]
  - BUNDLE BRANCH BLOCK RIGHT [None]
  - HYPERTENSION [None]
